FAERS Safety Report 24744365 (Version 2)
Quarter: 2024Q4

REPORT INFORMATION
  Report Type: Spontaneous
  Country: JP (occurrence: JP)
  Receive Date: 20241217
  Receipt Date: 20241227
  Transmission Date: 20250115
  Serious: No
  Sender: PFIZER
  Company Number: JP-PFIZER INC-PV202400160422

PATIENT
  Sex: Female

DRUGS (1)
  1. GENOTROPIN [Suspect]
     Active Substance: SOMATROPIN
     Dosage: 0.8 MG ON SATURDAYS AND SUNDAYS, AND 0.6 MG WAS ADMINISTERED ON OTHER DAYS

REACTIONS (2)
  - Device breakage [Unknown]
  - Device physical property issue [Unknown]
